FAERS Safety Report 13871472 (Version 1)
Quarter: 2017Q3

REPORT INFORMATION
  Report Type: Spontaneous
  Country: US (occurrence: US)
  Receive Date: 20170816
  Receipt Date: 20170816
  Transmission Date: 20171127
  Serious: No
  Sender: FDA-Public Use
  Company Number: US-ELI_LILLY_AND_COMPANY-US201707010892

PATIENT
  Sex: Female

DRUGS (1)
  1. HUMALOG [Suspect]
     Active Substance: INSULIN LISPRO
     Indication: TYPE 2 DIABETES MELLITUS
     Dosage: 15 U, TID
     Route: 058

REACTIONS (5)
  - Oropharyngeal pain [Unknown]
  - Macular degeneration [Unknown]
  - Cough [Unknown]
  - Grip strength decreased [Unknown]
  - Limb discomfort [Unknown]
